FAERS Safety Report 25914920 (Version 1)
Quarter: 2025Q4

REPORT INFORMATION
  Report Type: Spontaneous
  Country: MY (occurrence: MY)
  Receive Date: 20251013
  Receipt Date: 20251013
  Transmission Date: 20260118
  Serious: Yes (Other)
  Sender: NOVARTIS
  Company Number: MY-002147023-NVSC2025MY153732

PATIENT
  Age: 52 Year
  Sex: Female

DRUGS (3)
  1. CYCLOSPORINE [Suspect]
     Active Substance: CYCLOSPORINE
     Indication: Graft versus host disease
     Dosage: UNK
     Route: 065
  2. RUXOLITINIB [Suspect]
     Active Substance: RUXOLITINIB
     Indication: Chronic graft versus host disease
     Dosage: 5 MG, BID
     Route: 065
  3. METHOTREXATE [Suspect]
     Active Substance: METHOTREXATE
     Indication: Graft versus host disease
     Dosage: UNK
     Route: 065

REACTIONS (10)
  - Cytopenia [Unknown]
  - Cytomegalovirus viraemia [Unknown]
  - Acute graft versus host disease in skin [Unknown]
  - Graft versus host disease in eye [Unknown]
  - Mucosal inflammation [Unknown]
  - Bacteroides bacteraemia [Unknown]
  - Graft versus host disease oral [Unknown]
  - Chronic graft versus host disease [Unknown]
  - Condition aggravated [Unknown]
  - Off label use [Unknown]
